FAERS Safety Report 7786912-X (Version None)
Quarter: 2011Q3

REPORT INFORMATION
  Report Type: 
  Country: None (occurrence: None)
  Receive Date: 20110929
  Receipt Date: 20110919
  Transmission Date: 20111222
  Serious: Yes (Other)
  Sender: FDA-Public Use
  Company Number: GB-BRISTOL-MYERS SQUIBB COMPANY-16110934

PATIENT
  Sex: Female

DRUGS (4)
  1. AZATHIOPRINE [Suspect]
     Indication: VASCULITIS
  2. CYCLOSPORINE [Suspect]
     Dosage: INITIAL DOSE:1MG/KG MAX DOSE:60MG DOSE DEC:10MG/D
     Route: 048
  3. MYCOPHENOLATE MOFETIL [Suspect]
     Indication: VASCULITIS
  4. CYCLOPHOSPHAMIDE [Suspect]
     Indication: VASCULITIS
     Dosage: TOTAL 3 DOSES FOLLOWING BY 3 WEEKS FOR ANOTHER 2-4 DOSES
     Route: 048

REACTIONS (12)
  - OSTEOPOROSIS [None]
  - OSTEONECROSIS [None]
  - BREAST CANCER [None]
  - CUSHING'S SYNDROME [None]
  - HIRSUTISM [None]
  - INFERTILITY [None]
  - HERPES ZOSTER [None]
  - HEARING IMPAIRED [None]
  - LARYNGEAL STENOSIS [None]
  - PARONYCHIA [None]
  - WEGENER'S GRANULOMATOSIS [None]
  - URINARY TRACT INFECTION [None]
